FAERS Safety Report 4505033-2 (Version None)
Quarter: 2004Q4

REPORT INFORMATION
  Report Type: 
  Country: None (occurrence: None)
  Receive Date: 20041015
  Receipt Date: 20030920
  Transmission Date: 20050328
  Serious: Yes (Other)
  Sender: FDA-Public Use
  Company Number: 2003039651

PATIENT
  Sex: Female

DRUGS (2)
  1. NEURONTIN [Suspect]
     Indication: PAIN
     Dosage: 300 MG TID OR QID ORAL
     Route: 048
  2. ANTIHYPERTENSIVES [Concomitant]

REACTIONS (6)
  - DYSPHAGIA [None]
  - NAUSEA [None]
  - OROPHARYNGEAL SWELLING [None]
  - PAIN EXACERBATED [None]
  - SWELLING FACE [None]
  - VOMITING [None]
